FAERS Safety Report 11999062 (Version 1)
Quarter: 2016Q1

REPORT INFORMATION
  Report Type: Spontaneous
  Country: US (occurrence: None)
  Receive Date: 20160203
  Receipt Date: 20160203
  Transmission Date: 20160526
  Serious: Yes (Life-Threatening, Hospitalization)
  Sender: FDA-Public Use
  Company Number: None

PATIENT
  Age: 8 Month
  Sex: Female
  Weight: 8 kg

DRUGS (2)
  1. NSS 0.9% HOSPIRA [Suspect]
     Active Substance: SODIUM CHLORIDE
     Indication: PRODUCT USED FOR UNKNOWN INDICATION
     Route: 042
     Dates: start: 20150709, end: 20150709
  2. VINCRISTINE 2MG/2ML HOSPIRA [Suspect]
     Active Substance: VINCRISTINE
     Indication: RHABDOMYOSARCOMA
     Route: 042
     Dates: start: 20150709, end: 20150709

REACTIONS (4)
  - Vomiting [None]
  - Unresponsive to stimuli [None]
  - Heart rate decreased [None]
  - Cough [None]

NARRATIVE: CASE EVENT DATE: 20150709
